FAERS Safety Report 6619254-6 (Version None)
Quarter: 2010Q1

REPORT INFORMATION
  Report Type: 
  Country: None (occurrence: None)
  Receive Date: 20100303
  Receipt Date: 20100301
  Transmission Date: 20100710
  Serious: Yes (Death)
  Sender: FDA-Public Use
  Company Number: 2009SP009787

PATIENT
  Age: 61 Year
  Weight: 70 kg

DRUGS (10)
  1. TEMODAL [Suspect]
     Indication: GLIOBLASTOMA MULTIFORME
     Dosage: 75 MG/M2;QD;PO, 150 MG/M2;QD;PO,  100 MG/M2;QD;PO
     Route: 048
     Dates: start: 20070130, end: 20070312
  2. TEMODAL [Suspect]
     Indication: GLIOBLASTOMA MULTIFORME
     Dosage: 75 MG/M2;QD;PO, 150 MG/M2;QD;PO,  100 MG/M2;QD;PO
     Route: 048
     Dates: start: 20070410, end: 20070414
  3. TEMODAL [Suspect]
     Indication: GLIOBLASTOMA MULTIFORME
     Dosage: 75 MG/M2;QD;PO, 150 MG/M2;QD;PO,  100 MG/M2;QD;PO
     Route: 048
     Dates: start: 20070508, end: 20070512
  4. TEMODAL [Suspect]
     Indication: GLIOBLASTOMA MULTIFORME
     Dosage: 75 MG/M2;QD;PO, 150 MG/M2;QD;PO,  100 MG/M2;QD;PO
     Route: 048
     Dates: start: 20070605, end: 20070609
  5. TEMODAL [Suspect]
     Indication: GLIOBLASTOMA MULTIFORME
     Dosage: 75 MG/M2;QD;PO, 150 MG/M2;QD;PO,  100 MG/M2;QD;PO
     Route: 048
     Dates: start: 20070703, end: 20070707
  6. DECADRON [Concomitant]
  7. NORVASC [Concomitant]
  8. INHIBACE [Concomitant]
  9. KALIMATE [Concomitant]
  10. ONEALFA [Concomitant]

REACTIONS (4)
  - ABASIA [None]
  - GENERAL PHYSICAL HEALTH DETERIORATION [None]
  - HYPOPHAGIA [None]
  - LEUKOENCEPHALOPATHY [None]
